FAERS Safety Report 9306369 (Version 1)
Quarter: 2013Q2

REPORT INFORMATION
  Report Type: Spontaneous
  Country: US (occurrence: US)
  Receive Date: 20130523
  Receipt Date: 20130523
  Transmission Date: 20140414
  Serious: No
  Sender: FDA-Public Use
  Company Number: US-PFIZER INC-2013155331

PATIENT
  Age: 51 Year
  Sex: Female
  Weight: 54.42 kg

DRUGS (3)
  1. ZITHROMAX [Suspect]
     Indication: EAR INFECTION
     Dosage: UNK
     Dates: start: 201109, end: 2011
  2. KLONOPIN [Concomitant]
     Indication: ANXIETY
     Dosage: 2 MG, 2X/DAY
  3. SYNTHROID [Concomitant]
     Indication: HYPOTHYROIDISM
     Dosage: 100 UG, 1X/DAY

REACTIONS (1)
  - Drug ineffective [Unknown]
